FAERS Safety Report 6442073-0 (Version None)
Quarter: 2009Q4

REPORT INFORMATION
  Report Type: 
  Country: None (occurrence: None)
  Receive Date: 20091116
  Receipt Date: 20091103
  Transmission Date: 20100525
  Serious: Yes (Hospitalization)
  Sender: FDA-Public Use
  Company Number: PHEH2009US15073

PATIENT
  Sex: Male

DRUGS (3)
  1. EXJADE [Suspect]
     Indication: SICKLE CELL ANAEMIA
     Dosage: 2000 MG DAILY
     Route: 048
     Dates: start: 20090406
  2. EXJADE [Suspect]
     Indication: MINERAL METABOLISM DISORDER
  3. EXJADE [Suspect]
     Indication: TRANSFUSION

REACTIONS (1)
  - SICKLE CELL ANAEMIA WITH CRISIS [None]
